FAERS Safety Report 9813933 (Version 1)
Quarter: 2014Q1

REPORT INFORMATION
  Report Type: Spontaneous
  Country: US (occurrence: US)
  Receive Date: 20140113
  Receipt Date: 20140113
  Transmission Date: 20141002
  Serious: Yes (Hospitalization)
  Sender: FDA-Public Use
  Company Number: US-B.I. PHARMACEUTICALS,INC./RIDGEFIELD-2014-BI-01406BP

PATIENT
  Age: 76 Year
  Sex: Female
  Weight: 67 kg

DRUGS (8)
  1. SPIRIVA [Suspect]
     Indication: CHRONIC OBSTRUCTIVE PULMONARY DISEASE
     Dosage: 18 MCG
     Route: 055
     Dates: start: 201309
  2. VYTORIN [Concomitant]
     Indication: BLOOD CHOLESTEROL INCREASED
     Dosage: STRENGTH: 10-20; DAILY DOSE: 10-20
     Route: 048
  3. BACLOFEN [Concomitant]
     Indication: BACK PAIN
     Dosage: 10 MG
     Route: 048
  4. CHLORAZEPATE [Concomitant]
     Indication: ANXIETY
     Dosage: 15 MG
     Route: 048
  5. AMLODIPINE [Concomitant]
     Indication: HYPERTENSION
     Dosage: 10 MG
     Route: 048
  6. MVI WOMENS 50 + ALIVE [Concomitant]
     Route: 048
  7. ECOTRIN [Concomitant]
     Dosage: 81 MG
     Route: 048
  8. STOOL SOFTENER [Concomitant]
     Dosage: STRENGTH: 2 CAPSULES; DAILY DOSE: 6 CAPSULES
     Route: 048

REACTIONS (1)
  - Intestinal perforation [Recovered/Resolved]
